FAERS Safety Report 16890184 (Version 3)
Quarter: 2019Q4

REPORT INFORMATION
  Report Type: Report from Study
  Country: IL (occurrence: IL)
  Receive Date: 20191007
  Receipt Date: 20191217
  Transmission Date: 20200122
  Serious: Yes (Hospitalization)
  Sender: FDA-Public Use
  Company Number: IL-ROCHE-2420566

PATIENT
  Age: 68 Year
  Sex: Male
  Weight: 80 kg

DRUGS (23)
  1. NAB-PACLITAXEL [Suspect]
     Active Substance: PACLITAXEL
     Indication: NON-SMALL CELL LUNG CANCER
     Dosage: DATE OF MOST RECENT DOSE OF NAB-PACLITAXEL PRIOR TO AE/SAE ONSET: 31/JUL/2019?NAB-PACLITAXEL 100 MG/
     Route: 042
     Dates: start: 20190515
  2. ESOMEPRAZOLE. [Concomitant]
     Active Substance: ESOMEPRAZOLE MAGNESIUM
     Indication: DYSPEPSIA
     Route: 001
     Dates: start: 20190716
  3. XATRAL [Concomitant]
     Active Substance: ALFUZOSIN
     Indication: URINARY RETENTION
     Route: 065
     Dates: start: 20190716
  4. HEPARIN [Concomitant]
     Active Substance: HEPARIN SODIUM
     Route: 065
     Dates: start: 20190906, end: 20190906
  5. CLEXANE [Concomitant]
     Active Substance: ENOXAPARIN SODIUM
     Route: 065
     Dates: start: 20190907, end: 20191010
  6. AVILAC [LACTULOSE] [Concomitant]
     Indication: CONSTIPATION
     Route: 065
     Dates: start: 20190922, end: 20190922
  7. CARBOPLATIN. [Suspect]
     Active Substance: CARBOPLATIN
     Indication: NON-SMALL CELL LUNG CANCER
     Dosage: DATE OF MOST RECENT DOSE OF CARBOPLATIN PRIOR TO AE/SAE ONSET: 25/JUL/2019?CARBOPLATIN INITIAL TARGE
     Route: 042
     Dates: start: 20190515
  8. TRAMADOL. [Concomitant]
     Active Substance: TRAMADOL
     Route: 065
     Dates: start: 20190905, end: 20190906
  9. LIPITOR [Concomitant]
     Active Substance: ATORVASTATIN CALCIUM
     Indication: HYPERLIPIDAEMIA
     Route: 048
     Dates: start: 20190106
  10. AEROVENT [IPRATROPIUM BROMIDE] [Concomitant]
     Indication: DYSPNOEA
     Route: 065
     Dates: start: 20190703
  11. NYSTATIN. [Concomitant]
     Active Substance: NYSTATIN
     Indication: STOMATITIS
     Route: 065
     Dates: start: 20190725
  12. ASPIRIN [ACETYLSALICYLIC ACID] [Concomitant]
     Active Substance: ASPIRIN
     Route: 065
     Dates: start: 20190904, end: 20190905
  13. ALFUZOSIN [Concomitant]
     Active Substance: ALFUZOSIN
     Indication: NEPHROLITHIASIS
     Route: 048
     Dates: start: 20190312
  14. SIRAN [Concomitant]
     Route: 065
     Dates: start: 20190906, end: 20191010
  15. AROVENT [Concomitant]
     Active Substance: MONTELUKAST SODIUM
     Route: 065
     Dates: start: 20190905, end: 20190908
  16. CEFAZOLIN SODIUM;LIDOCAINE HYDROCHLORIDE [Concomitant]
     Route: 065
     Dates: start: 20190905, end: 20190905
  17. OXYCODONE [Concomitant]
     Active Substance: OXYCODONE
     Indication: PAIN
     Route: 065
     Dates: start: 20190906, end: 20190908
  18. TRAMADOL. [Concomitant]
     Active Substance: TRAMADOL
     Route: 065
     Dates: start: 20190920, end: 20190925
  19. ACAMOL [PARACETAMOL] [Concomitant]
     Indication: PAIN
     Route: 065
     Dates: start: 20190905, end: 20190911
  20. ACAMOL [PARACETAMOL] [Concomitant]
     Route: 065
     Dates: start: 20190920, end: 20190925
  21. ATEZOLIZUMAB. [Suspect]
     Active Substance: ATEZOLIZUMAB
     Indication: NON-SMALL CELL LUNG CANCER
     Dosage: DATE OF MOST RECENT DOSE OF ATEZOLIZUMAB PRIOR TO SAE ONSET: 25/JUL/2019
     Route: 042
     Dates: start: 20190515
  22. MICROPIRIN [Concomitant]
     Active Substance: ASPIRIN
     Indication: CEREBROVASCULAR ACCIDENT
     Route: 048
     Dates: start: 20190106
  23. OPTALGIN [Concomitant]
     Active Substance: METAMIZOLE
     Indication: PAIN
     Route: 065
     Dates: start: 20190905, end: 20191010

REACTIONS (2)
  - Procedural pneumothorax [Recovered/Resolved]
  - Emphysema [Recovered/Resolved]

NARRATIVE: CASE EVENT DATE: 20190920
